FAERS Safety Report 8144321-8 (Version None)
Quarter: 2012Q1

REPORT INFORMATION
  Report Type: 
  Country: None (occurrence: None)
  Receive Date: 20120217
  Receipt Date: 20120208
  Transmission Date: 20120608
  Serious: Yes (Disabling, Other)
  Sender: FDA-Public Use
  Company Number: US-JNJFOC-20120205160

PATIENT
  Sex: Female
  Weight: 49.9 kg

DRUGS (6)
  1. TOPAMAX [Suspect]
     Indication: EPILEPSY
     Dosage: 100 MG 1 TABLET IN THE MORNING AND 2 TABLETS AT NIGHT
     Route: 048
  2. PREMARIN [Interacting]
     Indication: HORMONE LEVEL ABNORMAL
     Route: 048
  3. PROVERA [Interacting]
     Indication: HORMONE LEVEL ABNORMAL
     Route: 048
  4. LAMICTAL [Interacting]
     Indication: EPILEPSY
     Route: 048
  5. LEXAPRO [Interacting]
     Indication: DEPRESSION
     Route: 065
  6. VIMPAT [Interacting]
     Indication: EPILEPSY
     Route: 065

REACTIONS (6)
  - SOMNOLENCE [None]
  - DRUG INEFFECTIVE [None]
  - TREMOR [None]
  - BALANCE DISORDER [None]
  - DRUG INTERACTION [None]
  - EPILEPSY [None]
